FAERS Safety Report 5185830-3 (Version None)
Quarter: 2006Q4

REPORT INFORMATION
  Report Type: 
  Country: None (occurrence: None)
  Receive Date: 20061220
  Receipt Date: 20060918
  Transmission Date: 20070319
  Serious: No
  Sender: FDA-Public Use
  Company Number: US-GLAXOSMITHKLINE-A0620501A

PATIENT
  Age: 21 Year
  Sex: Male

DRUGS (1)
  1. TARGET NTS 21MG [Suspect]
     Dates: start: 20060905

REACTIONS (3)
  - APPLICATION SITE PAIN [None]
  - HANGOVER [None]
  - VOMITING [None]
